FAERS Safety Report 5618158-5 (Version None)
Quarter: 2008Q1

REPORT INFORMATION
  Report Type: 
  Country: None (occurrence: None)
  Receive Date: 20080207
  Receipt Date: 20071101
  Transmission Date: 20080703
  Serious: No
  Sender: FDA-Public Use
  Company Number: A0688958A

PATIENT
  Age: 55 Year
  Sex: Female

DRUGS (10)
  1. PAXIL [Suspect]
     Indication: DEPRESSION
     Dosage: 60MG PER DAY
     Route: 048
     Dates: start: 20010101
  2. CAPTOPRIL [Concomitant]
     Route: 048
  3. ZOCOR [Concomitant]
     Route: 048
  4. ALDACTONE [Concomitant]
     Route: 048
  5. PROVIGIL [Concomitant]
     Route: 048
  6. HUMALOG [Concomitant]
     Route: 048
  7. COREG [Concomitant]
     Route: 048
  8. ABILIFY [Concomitant]
     Route: 048
  9. GEODON [Concomitant]
     Route: 048
  10. KLONOPIN [Concomitant]
     Route: 048

REACTIONS (1)
  - HYPONATRAEMIA [None]
